FAERS Safety Report 8375927-9 (Version None)
Quarter: 2012Q2

REPORT INFORMATION
  Report Type: 
  Country: None (occurrence: None)
  Receive Date: 20120517
  Receipt Date: 20120502
  Transmission Date: 20120825
  Serious: Yes (Other)
  Sender: FDA-Public Use
  Company Number: 2011MPI00335

PATIENT
  Age: 21 Year
  Sex: Male

DRUGS (1)
  1. BRENTUXIMAB VEDOTIN (BRENTUXIMAB VEDOTIN) INJECTION [Suspect]
     Indication: HODGKIN'S DISEASE
     Dosage: 125 MG, INTRAVENOUS
     Route: 042
     Dates: start: 20110401, end: 20111012

REACTIONS (1)
  - PERIPHERAL SENSORIMOTOR NEUROPATHY [None]
